FAERS Safety Report 8764273 (Version 4)
Quarter: 2012Q4

REPORT INFORMATION
  Report Type: Report from Study
  Country: US (occurrence: US)
  Receive Date: 20120831
  Receipt Date: 20120923
  Transmission Date: 20130627
  Serious: Yes (Hospitalization, Other)
  Sender: FDA-Public Use
  Company Number: US-ABBOTT-12P-163-0971601-00

PATIENT
  Sex: Female
  Weight: 89.89 kg

DRUGS (2)
  1. HUMIRA 40 MG/ 0.8 ML PRE-FILLED SYRINGE [Suspect]
     Indication: RHEUMATOID ARTHRITIS
     Dates: start: 2005
  2. PREDNISONE [Concomitant]
     Indication: RHEUMATOID ARTHRITIS

REACTIONS (21)
  - Nephrolithiasis [Recovered/Resolved]
  - Pericarditis [Not Recovered/Not Resolved]
  - Staphylococcal infection [Recovered/Resolved]
  - Pulmonary mass [Recovered/Resolved]
  - Ankle fracture [Recovered/Resolved]
  - Impaired healing [Recovered/Resolved]
  - Wound [Recovered/Resolved]
  - Cellulitis [Recovered/Resolved]
  - Abdominal distension [Recovered/Resolved]
  - Abdominal hernia [Recovered/Resolved]
  - Abdominal hernia [Recovered/Resolved]
  - Cardiac failure congestive [Not Recovered/Not Resolved]
  - Cardiac arrest [Recovered/Resolved]
  - Pericardial effusion [Unknown]
  - Pulmonary hypertension [Unknown]
  - Fatigue [Recovered/Resolved]
  - Red blood cell sedimentation rate increased [Not Recovered/Not Resolved]
  - C-reactive protein increased [Not Recovered/Not Resolved]
  - Narcolepsy [Not Recovered/Not Resolved]
  - Rash [Unknown]
  - Venous insufficiency [Unknown]
